FAERS Safety Report 11644730 (Version 1)
Quarter: 2015Q4

REPORT INFORMATION
  Report Type: Spontaneous
  Country: US (occurrence: None)
  Receive Date: 20151019
  Receipt Date: 20151019
  Transmission Date: 20160304
  Serious: Yes (Hospitalization, Disabling)
  Sender: FDA-Public Use
  Company Number: None

PATIENT
  Age: 53 Year
  Sex: Male
  Weight: 95.26 kg

DRUGS (12)
  1. MULTI-MINERAL [Concomitant]
  2. VITAMIN D [Concomitant]
     Active Substance: CHOLECALCIFEROL
  3. CO-Q10 [Concomitant]
  4. L-CARNITINE [Concomitant]
     Active Substance: LEVOCARNITINE
  5. VITAMIN B COMPLEX [Concomitant]
     Active Substance: CYANOCOBALAMIN\DEXPANTHENOL\NIACINAMIDE\PYRIDOXINE HYDROCHLORIDE\RIBOFLAVIN 5^-PHOSPHATE SODIUM\THIAMINE HYDROCHLORIDE\VITAMIN B COMPLEX
  6. POTASSIUM [Concomitant]
     Active Substance: POTASSIUM
  7. D-RIBOSE [Concomitant]
     Active Substance: DIETARY SUPPLEMENT
  8. MULTI-VITAMIN [Concomitant]
     Active Substance: .ALPHA.-TOCOPHEROL ACETATE, DL-\ASCORBIC ACID\CYANOCOBALAMIN\FLUORIDE ION\FOLIC ACID\NIACIN\PYRIDOXINE\RIBOFLAVIN\THIAMINE\VITAMIN A\VITAMIN D
  9. FISH OIL [Concomitant]
     Active Substance: FISH OIL
  10. CRESTOR [Suspect]
     Active Substance: ROSUVASTATIN CALCIUM
     Indication: HYPERGLYCAEMIA
     Dosage: 1 PILL
     Route: 048
     Dates: start: 20020705, end: 20140807
  11. ATACAND [Concomitant]
     Active Substance: CANDESARTAN CILEXETIL
  12. PREDNISONE. [Concomitant]
     Active Substance: PREDNISONE

REACTIONS (8)
  - Muscle spasticity [None]
  - Muscle twitching [None]
  - Muscle spasms [None]
  - Peroneal nerve palsy [None]
  - Asthenia [None]
  - Myalgia [None]
  - Gait disturbance [None]
  - Muscle necrosis [None]

NARRATIVE: CASE EVENT DATE: 20121221
